FAERS Safety Report 17210738 (Version 1)
Quarter: 2019Q4

REPORT INFORMATION
  Report Type: Spontaneous
  Country: US (occurrence: US)
  Receive Date: 20191227
  Receipt Date: 20191227
  Transmission Date: 20200122
  Serious: Yes (Life-Threatening)
  Sender: FDA-Public Use
  Company Number: US-EPIHEALTH-2019-US-024212

PATIENT
  Age: 75 Year
  Sex: Female
  Weight: 58.51 kg

DRUGS (17)
  1. RHOFADE [Suspect]
     Active Substance: OXYMETAZOLINE HYDROCHLORIDE
     Indication: THERAPEUTIC SKIN CARE TOPICAL
     Dosage: APPLIED ONCE DAILY TO FACE
     Route: 061
     Dates: start: 201908, end: 20191104
  2. CURCUMIN [Concomitant]
     Active Substance: CURCUMIN
  3. VITAMIN B12 [Concomitant]
     Active Substance: CYANOCOBALAMIN
  4. CRANBERRY. [Concomitant]
     Active Substance: CRANBERRY
  5. FISH OIL [Concomitant]
     Active Substance: FISH OIL
  6. COENZYME Q10 [Concomitant]
     Active Substance: UBIDECARENONE
  7. MILK THISTLE [Concomitant]
     Active Substance: DIETARY SUPPLEMENT\HERBALS\MILK THISTLE
  8. FOLATE [Concomitant]
     Active Substance: FOLATE SODIUM
  9. MELATONIN [Concomitant]
     Active Substance: MELATONIN
  10. GRAPESEED [Concomitant]
  11. NEUPRO [Concomitant]
     Active Substance: ROTIGOTINE
  12. MAGNESIUM [Concomitant]
     Active Substance: MAGNESIUM
  13. QUERCETIN [Concomitant]
     Active Substance: QUERCETIN
  14. BLUE EXTRACT [Concomitant]
  15. OMEGA-3 ACIDS [Concomitant]
     Active Substance: OMEGA-3 FATTY ACIDS
  16. VITAMIN D [Concomitant]
     Active Substance: VITAMIN D NOS
  17. CARBIDOPA/LEVODOPA [Concomitant]
     Active Substance: CARBIDOPA\LEVODOPA

REACTIONS (1)
  - Ischaemic stroke [Unknown]

NARRATIVE: CASE EVENT DATE: 20191104
